FAERS Safety Report 13838917 (Version 1)
Quarter: 2017Q3

REPORT INFORMATION
  Report Type: Spontaneous
  Country: US (occurrence: US)
  Receive Date: 20170807
  Receipt Date: 20170807
  Transmission Date: 20171127
  Serious: No
  Sender: FDA-Public Use
  Company Number: US-PFIZER INC-2017340237

PATIENT
  Age: 63 Year
  Sex: Male

DRUGS (2)
  1. GABAPENTIN. [Suspect]
     Active Substance: GABAPENTIN
     Dosage: 400 MG, UNK (GABAPENTIN WAS 300MG/ HIS DOCTOR ADDED AN ADDITIONAL 100MG OF THE GABAPENTIN  )
  2. GABAPENTIN. [Suspect]
     Active Substance: GABAPENTIN
     Indication: PAIN
     Dosage: 300 MG, UNK

REACTIONS (2)
  - Somnolence [Unknown]
  - Drug ineffective for unapproved indication [Unknown]
